FAERS Safety Report 5488356-2 (Version None)
Quarter: 2007Q4

REPORT INFORMATION
  Report Type: 
  Country: None (occurrence: None)
  Receive Date: 20071017
  Receipt Date: 20071015
  Transmission Date: 20080405
  Serious: Yes (Life-Threatening)
  Sender: FDA-Public Use
  Company Number: B0486672A

PATIENT
  Age: 65 Year
  Sex: Female
  Weight: 39 kg

DRUGS (1)
  1. PAXIL [Suspect]
     Indication: BIPOLAR I DISORDER
     Dosage: 20MG PER DAY
     Route: 048
     Dates: end: 20070907

REACTIONS (3)
  - HYPONATRAEMIA [None]
  - INAPPROPRIATE ANTIDIURETIC HORMONE SECRETION [None]
  - LOSS OF CONSCIOUSNESS [None]
